FAERS Safety Report 9474142 (Version 3)
Quarter: 2014Q1

REPORT INFORMATION
  Report Type: Report from Study
  Country: US (occurrence: US)
  Receive Date: 20130823
  Receipt Date: 20140110
  Transmission Date: 20141002
  Serious: Yes (Death, Hospitalization, Other)
  Sender: FDA-Public Use
  Company Number: US-ALEXION PHARMACEUTICALS INC.-A201302004

PATIENT
  Age: 53 Year
  Sex: Female
  Weight: 50.8 kg

DRUGS (10)
  1. SOLIRIS [Suspect]
     Indication: HAEMOLYTIC URAEMIC SYNDROME
     Dosage: 900 MG, QW
     Route: 042
     Dates: start: 20121221, end: 20130614
  2. SOLIRIS [Suspect]
     Dosage: 1200 MG, Q2W
     Route: 042
     Dates: start: 20130118, end: 20130613
  3. ADVAIR [Concomitant]
     Dosage: UNK
  4. BUDESONIDE [Concomitant]
     Dosage: UNK
  5. FOLIC ACID [Concomitant]
     Dosage: UNK
  6. NIZATIDINE [Concomitant]
     Dosage: UNK
  7. ALBUTEROL [Concomitant]
     Dosage: UNK
  8. CALCIUM ACETATE [Concomitant]
     Dosage: UNK
  9. LABETALOL [Concomitant]
     Dosage: UNK
  10. SINGULAIR [Concomitant]
     Dosage: UNK

REACTIONS (4)
  - Breast cancer [Fatal]
  - Renal failure [Fatal]
  - Cardiac failure [Fatal]
  - Respiratory failure [Fatal]
